FAERS Safety Report 21783631 (Version 3)
Quarter: 2023Q1

REPORT INFORMATION
  Report Type: Report from Study
  Country: CA (occurrence: CA)
  Receive Date: 20221227
  Receipt Date: 20230222
  Transmission Date: 20230417
  Serious: Yes (Other)
  Sender: FDA-Public Use
  Company Number: CA-MYLANLABS-2022M1146683

PATIENT

DRUGS (1)
  1. HULIO [Suspect]
     Active Substance: ADALIMUMAB-FKJP
     Indication: Rheumatoid arthritis
     Dosage: 40 MILLIGRAM, BIWEEKLY (14)
     Route: 058
     Dates: start: 20221026

REACTIONS (4)
  - Nephrolithiasis [Unknown]
  - Pain [Unknown]
  - Pyrexia [Unknown]
  - Product storage error [Unknown]
